FAERS Safety Report 4751664-4 (Version None)
Quarter: 2005Q3

REPORT INFORMATION
  Report Type: 
  Country: None (occurrence: None)
  Receive Date: 20050824
  Receipt Date: 20050606
  Transmission Date: 20060218
  Serious: Yes (Other)
  Sender: FDA-Public Use
  Company Number: PHFR2005GB02078

PATIENT
  Age: 58 Year
  Sex: Female
  Weight: 80 kg

DRUGS (7)
  1. VALSARTAN [Concomitant]
     Indication: HYPERTENSION
     Dosage: 80 MG, QD
     Route: 048
     Dates: start: 19990101
  2. VALSARTAN [Concomitant]
     Route: 048
  3. BENDROFLUAZIDE [Concomitant]
     Indication: HYPERTENSION
     Dosage: 2.5 MG, QD
     Route: 048
     Dates: start: 19990101
  4. MELOXICAM [Concomitant]
     Indication: ARTHRITIS
     Route: 048
  5. TRAMADOL HCL [Concomitant]
     Indication: ARTHRITIS
     Dosage: 100 MG, BID PRN
     Route: 048
  6. LIVIAL [Concomitant]
     Indication: HORMONE REPLACEMENT THERAPY
     Route: 048
  7. GLEEVEC [Suspect]
     Indication: CHRONIC MYELOID LEUKAEMIA
     Dosage: 300MG/DAY
     Route: 048
     Dates: start: 20020705

REACTIONS (1)
  - PORPHYRIA NON-ACUTE [None]
